APPROVED DRUG PRODUCT: DIPHENHYDRAMINE HYDROCHLORIDE PRESERVATIVE FREE
Active Ingredient: DIPHENHYDRAMINE HYDROCHLORIDE
Strength: 50MG/ML
Dosage Form/Route: INJECTABLE;INJECTION
Application: A091526 | Product #001 | TE Code: AP
Applicant: FRESENIUS KABI USA LLC
Approved: Mar 26, 2013 | RLD: No | RS: No | Type: RX